FAERS Safety Report 12625581 (Version 2)
Quarter: 2016Q3

REPORT INFORMATION
  Report Type: Spontaneous
  Country: JP (occurrence: JP)
  Receive Date: 20160805
  Receipt Date: 20160822
  Transmission Date: 20161109
  Serious: Yes (Hospitalization, Other)
  Sender: FDA-Public Use
  Company Number: JP-GLAXOSMITHKLINE-JP2016JPN110816

PATIENT
  Age: 79 Year
  Sex: Female
  Weight: 40 kg

DRUGS (7)
  1. OLMETEC [Concomitant]
     Active Substance: OLMESARTAN MEDOXOMIL
     Dosage: UNK
  2. AMLODIPINE [Concomitant]
     Active Substance: AMLODIPINE BESYLATE
     Dosage: UNK
  3. MAGMITT [Concomitant]
     Active Substance: MAGNESIUM OXIDE
     Dosage: UNK
  4. EDIROL [Concomitant]
     Active Substance: ELDECALCITOL
     Dosage: UNK
  5. VALTREX [Suspect]
     Active Substance: VALACYCLOVIR HYDROCHLORIDE
     Dosage: 1000 MG, BID
     Route: 048
     Dates: start: 20160720, end: 20160727
  6. TAKEPRON [Concomitant]
     Active Substance: LANSOPRAZOLE
     Dosage: UNK
  7. FLUITRAN [Concomitant]
     Active Substance: TRICHLORMETHIAZIDE
     Dosage: UNK

REACTIONS (6)
  - Renal disorder [Recovering/Resolving]
  - Hallucination, visual [Recovering/Resolving]
  - Hypophagia [Unknown]
  - Toxic encephalopathy [Recovering/Resolving]
  - Dyskinesia [Recovering/Resolving]
  - Altered state of consciousness [Recovering/Resolving]

NARRATIVE: CASE EVENT DATE: 201607
